FAERS Safety Report 7291846-3 (Version None)
Quarter: 2011Q1

REPORT INFORMATION
  Report Type: 
  Country: None (occurrence: None)
  Receive Date: 20110214
  Receipt Date: 20110204
  Transmission Date: 20110831
  Serious: Yes (Hospitalization)
  Sender: FDA-Public Use
  Company Number: CO-ROCHE-754977

PATIENT
  Sex: Male

DRUGS (4)
  1. DEFLAZACORT [Concomitant]
     Route: 048
  2. MIRCERA [Suspect]
     Route: 058
     Dates: start: 20100308
  3. CELLCEPT [Suspect]
     Route: 048
     Dates: start: 20070207
  4. METOPROLOL [Concomitant]
     Route: 048

REACTIONS (3)
  - HYPERTENSION [None]
  - ANAEMIA [None]
  - SEPSIS [None]
